FAERS Safety Report 5934443-1 (Version None)
Quarter: 2008Q4

REPORT INFORMATION
  Report Type: 
  Country: None (occurrence: None)
  Receive Date: 20081010
  Receipt Date: 20071002
  Transmission Date: 20090506
  Serious: Yes (Other)
  Sender: FDA-Public Use
  Company Number: 2007SP019988

PATIENT
  Age: 56 Year
  Sex: Female
  Weight: 80 kg

DRUGS (9)
  1. TEMODAR [Suspect]
     Indication: GLIOBLASTOMA MULTIFORME
     Dosage: 75 MG/M2;QD;PO
     Route: 048
     Dates: start: 20070701, end: 20070705
  2. TEMODAR [Suspect]
     Indication: GLIOBLASTOMA MULTIFORME
     Dosage: 75 MG/M2;QD;PO
     Route: 048
     Dates: start: 20070802, end: 20070803
  3. TEMODAR [Suspect]
     Indication: GLIOBLASTOMA MULTIFORME
     Dosage: 75 MG/M2;QD;PO
     Route: 048
  4. PROTONIX [Concomitant]
  5. SYNTHROID [Concomitant]
  6. ASPIRIN [Concomitant]
  7. KEPPRA [Concomitant]
  8. DECADRON [Concomitant]
  9. KEPPRA [Concomitant]

REACTIONS (2)
  - CONVULSION [None]
  - DISEASE PROGRESSION [None]
